FAERS Safety Report 4969160-8 (Version None)
Quarter: 2006Q2

REPORT INFORMATION
  Report Type: 
  Country: None (occurrence: None)
  Receive Date: 20060411
  Receipt Date: 20051011
  Transmission Date: 20061013
  Serious: Yes (Other)
  Sender: FDA-Public Use
  Company Number: US-BRISTOL-MYERS SQUIBB COMPANY-13141320

PATIENT
  Age: 50 Year
  Sex: Male
  Weight: 89 kg

DRUGS (9)
  1. ETOPOSIDE [Suspect]
     Indication: LUNG NEOPLASM MALIGNANT
  2. CARBOPLATIN [Suspect]
     Indication: LUNG NEOPLASM MALIGNANT
  3. DECADRON [Concomitant]
     Indication: PREMEDICATION
     Route: 042
  4. DOLASETRON [Concomitant]
     Indication: PREMEDICATION
     Route: 042
  5. NEXIUM [Concomitant]
  6. CALCIUM CARBONATE [Concomitant]
  7. M.V.I. [Concomitant]
  8. FLOMAX [Concomitant]
  9. FLONASE [Concomitant]

REACTIONS (2)
  - DYSPNOEA [None]
  - FLUSHING [None]
